FAERS Safety Report 9168541 (Version 1)
Quarter: 2013Q1

REPORT INFORMATION
  Report Type: Spontaneous
  Country: US (occurrence: None)
  Receive Date: 20130314
  Receipt Date: 20130314
  Transmission Date: 20140127
  Serious: No
  Sender: FDA-Public Use
  Company Number: None

PATIENT
  Age: 50 Year
  Sex: Female

DRUGS (1)
  1. BOSULIF [Suspect]
     Route: 048
     Dates: start: 20130303, end: 20130310

REACTIONS (2)
  - Diarrhoea [None]
  - Rash [None]
